FAERS Safety Report 15520518 (Version 1)
Quarter: 2018Q4

REPORT INFORMATION
  Report Type: Report from Study
  Country: US (occurrence: US)
  Receive Date: 20181017
  Receipt Date: 20181017
  Transmission Date: 20190205
  Serious: No
  Sender: FDA-Public Use
  Company Number: US-AMGEN-USASL2018115479

PATIENT
  Sex: Female

DRUGS (1)
  1. REPATHA [Suspect]
     Active Substance: EVOLOCUMAB
     Indication: PRODUCT USED FOR UNKNOWN INDICATION
     Dosage: UNK UNK, Q2WK
     Route: 065

REACTIONS (8)
  - Burning sensation [Unknown]
  - Dizziness [Unknown]
  - Gait disturbance [Unknown]
  - Lethargy [Unknown]
  - Throat clearing [Unknown]
  - Feeling abnormal [Unknown]
  - Influenza like illness [Unknown]
  - Cough [Unknown]
